FAERS Safety Report 8167612-3 (Version None)
Quarter: 2012Q1

REPORT INFORMATION
  Report Type: 
  Country: None (occurrence: None)
  Receive Date: 20120227
  Receipt Date: 20120215
  Transmission Date: 20120608
  Serious: Yes (Other)
  Sender: FDA-Public Use
  Company Number: JP-PFIZER INC-2011313484

PATIENT
  Age: 50 Year
  Sex: Female

DRUGS (4)
  1. LOXONIN [Concomitant]
  2. LYRICA [Suspect]
     Dosage: 75+150 MG, 2X/DAY
     Route: 048
     Dates: start: 20111212, end: 20111219
  3. LYRICA [Suspect]
     Dosage: 150 MG, 2X/DAY
     Route: 048
     Dates: start: 20111220, end: 20120101
  4. LYRICA [Suspect]
     Dosage: 150 MG/DAY
     Route: 048
     Dates: start: 20111205, end: 20111211

REACTIONS (2)
  - HAEMORRHAGE [None]
  - PAIN IN EXTREMITY [None]
